FAERS Safety Report 21555343 (Version 1)
Quarter: 2022Q4

REPORT INFORMATION
  Report Type: Spontaneous
  Country: US (occurrence: US)
  Receive Date: 20221104
  Receipt Date: 20221104
  Transmission Date: 20230112
  Serious: No
  Sender: FDA-Public Use
  Company Number: US-Merz Pharmaceuticals GmbH-22-03097

PATIENT
  Age: 58 Year

DRUGS (4)
  1. XEOMIN [Suspect]
     Active Substance: INCOBOTULINUMTOXINA
     Indication: Product used for unknown indication
  2. BOTOX [Concomitant]
     Active Substance: ONABOTULINUMTOXINA
  3. DYSPORT [BOTULINUM TOXIN TYPE A] [Concomitant]
  4. JUVEDERM [Concomitant]
     Active Substance: HYALURONIC ACID

REACTIONS (3)
  - Drug ineffective [Unknown]
  - Swelling face [Recovering/Resolving]
  - Injection site urticaria [Unknown]
